FAERS Safety Report 18790496 (Version 3)
Quarter: 2022Q3

REPORT INFORMATION
  Report Type: Spontaneous
  Country: US (occurrence: US)
  Receive Date: 20210126
  Receipt Date: 20220708
  Transmission Date: 20221026
  Serious: No
  Sender: FDA-Public Use
  Company Number: US-PFIZER INC-2021051658

PATIENT
  Age: 68 Year
  Sex: Female

DRUGS (1)
  1. CELECOXIB [Suspect]
     Active Substance: CELECOXIB
     Dosage: 1 DF, 1X/DAY (FOR 90 DAYS)
     Route: 048

REACTIONS (1)
  - Drug ineffective [Unknown]
